FAERS Safety Report 26205821 (Version 1)
Quarter: 2025Q4

REPORT INFORMATION
  Report Type: Spontaneous
  Country: US (occurrence: US)
  Receive Date: 20251229
  Receipt Date: 20251229
  Transmission Date: 20260118
  Serious: No
  Sender: TOLMAR
  Company Number: US-Tolmar-TLM-2025-09503

PATIENT

DRUGS (3)
  1. ELIGARD [Suspect]
     Active Substance: LEUPROLIDE ACETATE
     Indication: Prostate cancer
     Dosage: NOT ADMINISTERED?BOX: LOT 15593CUS EXP 06/2027?SN: 2210908362205?GTIN ;00362935227106?SYRINGE A: LOT
  2. ELIGARD [Suspect]
     Active Substance: LEUPROLIDE ACETATE
     Dosage: REPLACEMENT DOSE GIVEN
  3. DEVICE [Suspect]
     Active Substance: DEVICE
     Indication: Prostate cancer
     Dosage: BOX: LOT 15593CUS EXP 06/2027?SN: 2210908362205?GTIN ;00362935227106?SYRINGE A: LOT 15593AUS EXP 06/

REACTIONS (2)
  - Intercepted product preparation error [Unknown]
  - Device leakage [Unknown]
